FAERS Safety Report 23828463 (Version 2)
Quarter: 2024Q2

REPORT INFORMATION
  Report Type: Spontaneous
  Country: JP (occurrence: JP)
  Receive Date: 20240508
  Receipt Date: 20240524
  Transmission Date: 20240716
  Serious: Yes (Hospitalization)
  Sender: FDA-Public Use
  Company Number: JP-CHEPLA-2024005615

PATIENT
  Age: 57 Year
  Sex: Female
  Weight: 62.7 kg

DRUGS (13)
  1. PACLITAXEL [Suspect]
     Active Substance: PACLITAXEL
     Indication: Breast cancer stage III
     Dosage: DAYS ONE?DAILY DOSE: 80 MILLIGRAM/M?
     Route: 042
  2. CARBOPLATIN [Suspect]
     Active Substance: CARBOPLATIN
     Indication: Breast cancer stage III
     Dosage: AUC 5
     Route: 042
  3. OLANZAPINE [Suspect]
     Active Substance: OLANZAPINE
     Dosage: TWICE DAILY. AUC 5 D.I.V. DAY ONE?DAILY DOSE: 5 MILLIGRAM
  4. PEMBROLIZUMAB [Suspect]
     Active Substance: PEMBROLIZUMAB
     Indication: Breast cancer stage III
     Dosage: 200 MG/BODY 30 MIN
     Route: 042
  5. FAMOTIDINE [Suspect]
     Active Substance: FAMOTIDINE
     Dosage: DAY ONE?DAILY DOSE: 10 MILLIGRAM
  6. CELECOXIB [Suspect]
     Active Substance: CELECOXIB
     Dosage: FOUR TIMES DAILY?DAILY DOSE: 400 MILLIGRAM
  7. LOPERAMIDE [Suspect]
     Active Substance: LOPERAMIDE
     Dosage: TWO CAPSULES TWICE DAILY?DAILY DOSE: 4 DOSAGE FORM
  8. CLOSTRIDIUM BUTYRICUM SPORES STRAIN M-55 [Suspect]
     Active Substance: CLOSTRIDIUM BUTYRICUM SPORES STRAIN M-55
  9. CLONAZEPAM [Concomitant]
     Active Substance: CLONAZEPAM
     Indication: Bipolar disorder
  10. CLOTIAZEPAM [Concomitant]
     Active Substance: CLOTIAZEPAM
     Indication: Bipolar disorder
  11. ADRIAMYCIN [Concomitant]
     Active Substance: DOXORUBICIN HYDROCHLORIDE
     Indication: Breast cancer stage III
  12. CYCLOPHOSPHAMIDE [Concomitant]
     Active Substance: CYCLOPHOSPHAMIDE
     Indication: Breast cancer stage III
     Dosage: DAY 14, FOR THREE CYCLES
     Route: 042
  13. DOXORUBICIN [Concomitant]
     Active Substance: DOXORUBICIN
     Indication: Breast cancer stage III
     Dosage: DAY 14, FOR THREE CYCLES
     Route: 042

REACTIONS (3)
  - Pneumocystis jirovecii pneumonia [Recovered/Resolved]
  - Hepatic function abnormal [Recovering/Resolving]
  - Depression [Unknown]
